FAERS Safety Report 9388868 (Version 1)
Quarter: 2013Q3

REPORT INFORMATION
  Report Type: Spontaneous
  Country: BR (occurrence: BR)
  Receive Date: 20130708
  Receipt Date: 20130708
  Transmission Date: 20140515
  Serious: Yes (Hospitalization)
  Sender: FDA-Public Use
  Company Number: BR-PFIZER INC-2013199167

PATIENT
  Age: 79 Year
  Sex: Female
  Weight: 60 kg

DRUGS (6)
  1. LIPITOR [Suspect]
     Dosage: 10 MG, 1X/DAY
     Dates: start: 20120103, end: 201306
  2. CARDILOL [Concomitant]
  3. CARDIZEN [Concomitant]
  4. MICARDIS [Concomitant]
  5. NATRILIX [Concomitant]
  6. PURAN T4 [Concomitant]

REACTIONS (2)
  - Anaemia [Unknown]
  - Gastric infection [Unknown]
